FAERS Safety Report 23057461 (Version 1)
Quarter: 2023Q4

REPORT INFORMATION
  Report Type: Spontaneous
  Country: PL (occurrence: PL)
  Receive Date: 20231012
  Receipt Date: 20231012
  Transmission Date: 20240110
  Serious: Yes (Other)
  Sender: FDA-Public Use
  Company Number: None

PATIENT
  Age: 58 Year
  Sex: Male
  Weight: 73 kg

DRUGS (1)
  1. KEYTRUDA [Suspect]
     Active Substance: PEMBROLIZUMAB
     Dosage: 200 MILLIGRAM, STRENGHT: 25MG/ML
     Route: 042
     Dates: start: 20230712, end: 20230712

REACTIONS (1)
  - Hyperbilirubinaemia [Unknown]

NARRATIVE: CASE EVENT DATE: 20230830
